FAERS Safety Report 6368805-8 (Version None)
Quarter: 2009Q3

REPORT INFORMATION
  Report Type: 
  Country: None (occurrence: None)
  Receive Date: 20090917
  Receipt Date: 20090917
  Transmission Date: 20100115
  Serious: Yes (Other)
  Sender: FDA-Public Use
  Company Number: None

PATIENT
  Sex: Female
  Weight: 67.3 kg

DRUGS (2)
  1. CYMBALTA [Suspect]
     Indication: ANXIETY
     Dosage: 60 MG 1/DAY4
     Dates: start: 20090401, end: 20090501
  2. CYMBALTA [Suspect]
     Indication: DEPRESSION
     Dosage: 60 MG 1/DAY4
     Dates: start: 20090401, end: 20090501

REACTIONS (3)
  - DIZZINESS [None]
  - DRUG DOSE OMISSION [None]
  - FATIGUE [None]
